FAERS Safety Report 8541519-1 (Version None)
Quarter: 2012Q3

REPORT INFORMATION
  Report Type: 
  Country: None (occurrence: None)
  Receive Date: 20120726
  Receipt Date: 20120718
  Transmission Date: 20120928
  Serious: Yes (Disabling, Other)
  Sender: FDA-Public Use
  Company Number: US-ABBOTT-12P-163-0957758-00

PATIENT
  Sex: Female
  Weight: 131.66 kg

DRUGS (4)
  1. UNKNOWN LONG LIST [Concomitant]
  2. UNKNOWN BP MEDICATION [Concomitant]
     Indication: PRODUCT USED FOR UNKNOWN INDICATION
  3. MERIDIA [Suspect]
     Indication: WEIGHT DECREASED
     Dates: start: 20020101, end: 20070101
  4. METFORMIN HYDROCHLORIDE [Concomitant]
     Indication: DIABETES MELLITUS

REACTIONS (7)
  - MENTAL IMPAIRMENT [None]
  - DISABILITY [None]
  - CEREBROVASCULAR ACCIDENT [None]
  - APHASIA [None]
  - HEMIPARESIS [None]
  - MYALGIA [None]
  - CONVULSION [None]
